FAERS Safety Report 17202729 (Version 1)
Quarter: 2019Q4

REPORT INFORMATION
  Report Type: Spontaneous
  Country: US (occurrence: US)
  Receive Date: 20191204
  Receipt Date: 20191204
  Transmission Date: 20200122
  Serious: Yes (Hospitalization)
  Sender: FDA-Public Use
  Company Number: None

PATIENT
  Age: 80 Year
  Sex: Female

DRUGS (2)
  1. SILDENAFIL 20MG TAB [Suspect]
     Active Substance: SILDENAFIL
     Indication: OSTEOPOROSIS
     Route: 048
     Dates: start: 20190505
  2. FORTEO [Suspect]
     Active Substance: TERIPARATIDE
     Dosage: ?          OTHER STRENGTH:600/2.4 UG/ML;OTHER DOSE:600/2.4 UG/ML;?
     Route: 058
     Dates: start: 20190706

REACTIONS (2)
  - Eye contusion [None]
  - Syncope [None]

NARRATIVE: CASE EVENT DATE: 20191126
